FAERS Safety Report 7388315-9 (Version None)
Quarter: 2011Q2

REPORT INFORMATION
  Report Type: 
  Country: None (occurrence: None)
  Receive Date: 20110401
  Receipt Date: 20110323
  Transmission Date: 20111010
  Serious: Yes (Other)
  Sender: FDA-Public Use
  Company Number: JP-ALEXION-A201100418

PATIENT
  Age: 60 Year
  Sex: Male

DRUGS (6)
  1. SOLIRIS [Suspect]
     Indication: PAROXYSMAL NOCTURNAL HAEMOGLOBINURIA
     Dosage: 600 MG, QW
     Route: 042
     Dates: start: 20101227
  2. SOLIRIS [Suspect]
     Dosage: 900 MG, Q2W
     Route: 042
  3. PREDONINE [Concomitant]
     Dosage: 10 MG, QD
  4. XYZAL [Concomitant]
     Dosage: 2 TABS, QD
  5. LENDORMIN [Concomitant]
     Dosage: 1 TAB, QD
  6. SOLIRIS [Suspect]
     Dosage: 600 MG, Q2W
     Route: 042
     Dates: start: 20110323

REACTIONS (3)
  - HYPOAESTHESIA [None]
  - NEUTROPENIA [None]
  - HEADACHE [None]
